FAERS Safety Report 4895457-6 (Version None)
Quarter: 2006Q1

REPORT INFORMATION
  Report Type: 
  Country: None (occurrence: None)
  Receive Date: 20060125
  Receipt Date: 20060123
  Transmission Date: 20060701
  Serious: Yes (Hospitalization)
  Sender: FDA-Public Use
  Company Number: LTI2006A00012

PATIENT
  Age: 63 Year
  Sex: Male

DRUGS (6)
  1. LANSOPRAZOLE [Suspect]
     Indication: PROPHYLAXIS AGAINST GASTROINTESTINAL ULCER
     Dosage: 30 MG (30 MG, 1 IN 1 D), ORAL
     Route: 048
  2. FLUCONAZOLE [Suspect]
     Dosage: 1 DF (1 DF, 1 IN 1 D), ORAL
     Route: 048
  3. CELEBREX [Suspect]
     Indication: MUSCULOSKELETAL PAIN
     Dosage: 200 MG (200 MG, 1 IN 1 D), ORAL, SEE IMAGE
     Route: 048
     Dates: start: 20010501, end: 20021101
  4. CELEBREX [Suspect]
     Indication: MUSCULOSKELETAL PAIN
     Dosage: 200 MG (200 MG, 1 IN 1 D), ORAL, SEE IMAGE
     Route: 048
     Dates: start: 20031101, end: 20040301
  5. MONO-TILDIEM LP (DILTIAZEM HYDROCHLORIDE) (CAPSULES) [Suspect]
     Indication: HYPERTENSION
     Dosage: 200 MG (200 MG, 1 IN 1 D), ORAL
     Route: 048
  6. GOLD SALT (GOLD) (INJECTION) [Concomitant]

REACTIONS (3)
  - ACUTE CORONARY SYNDROME [None]
  - CORONARY ARTERY STENOSIS [None]
  - PULMONARY EMBOLISM [None]
